FAERS Safety Report 5652645-9 (Version None)
Quarter: 2008Q1

REPORT INFORMATION
  Report Type: 
  Country: None (occurrence: None)
  Receive Date: 20080131
  Receipt Date: 20071029
  Transmission Date: 20080703
  Serious: No
  Sender: FDA-Public Use
  Company Number: US200710001608

PATIENT
  Age: 59 Year
  Sex: Female
  Weight: 102 kg

DRUGS (9)
  1. BYETTA [Suspect]
     Indication: TYPE 2 DIABETES MELLITUS
     Dosage: 5 UG, 2/D, SUBCUTANEOUS
     Route: 058
     Dates: start: 20070921
  2. ACTOS /USA/ (PIOGLITAZONE HYDROCHLORIDE) [Concomitant]
  3. METFORMIN HCL [Concomitant]
  4. LYRICA [Concomitant]
  5. OMACOR [Concomitant]
  6. ASPIRIN [Concomitant]
  7. TRICOR [Concomitant]
  8. NORVASC [Concomitant]
  9. FOLBIC (CYANOCOBALAMIN, FOLIC ACID, PYRIDOXINE HYDROCHLORIDE) [Concomitant]

REACTIONS (1)
  - URINARY TRACT INFECTION [None]
